FAERS Safety Report 5204753-4 (Version None)
Quarter: 2007Q1

REPORT INFORMATION
  Report Type: 
  Country: None (occurrence: None)
  Receive Date: 20070110
  Receipt Date: 20060710
  Transmission Date: 20070707
  Serious: No
  Sender: FDA-Public Use
  Company Number: US-BRISTOL-MYERS SQUIBB COMPANY-13437272

PATIENT
  Sex: Male

DRUGS (5)
  1. ABILIFY [Suspect]
     Indication: THINKING ABNORMAL
     Route: 048
  2. ABILIFY [Suspect]
     Indication: PSYCHOTIC DISORDER
     Route: 048
  3. ZOLOFT [Concomitant]
  4. GEODON [Concomitant]
  5. CYMBALTA [Concomitant]

REACTIONS (1)
  - DYSKINESIA [None]
